FAERS Safety Report 10558279 (Version 1)
Quarter: 2014Q4

REPORT INFORMATION
  Report Type: Spontaneous
  Country: US (occurrence: US)
  Receive Date: 20141031
  Receipt Date: 20141031
  Transmission Date: 20150529
  Serious: No
  Sender: FDA-Public Use
  Company Number: US-BAYER-2014-156493

PATIENT
  Age: 52 Year
  Sex: Female
  Weight: 61.22 kg

DRUGS (1)
  1. CLIMARA [Suspect]
     Active Substance: ESTRADIOL
     Indication: HYSTERECTOMY
     Dosage: 0,1MG/DAY WEEKLY
     Route: 062
     Dates: start: 201305

REACTIONS (3)
  - Migraine [Recovered/Resolved]
  - Product use issue [None]
  - Product adhesion issue [None]

NARRATIVE: CASE EVENT DATE: 20140911
